FAERS Safety Report 13741409 (Version 1)
Quarter: 2017Q3

REPORT INFORMATION
  Report Type: Spontaneous
  Country: US (occurrence: US)
  Receive Date: 20170711
  Receipt Date: 20170711
  Transmission Date: 20171127
  Serious: Yes (Disabling, Other)
  Sender: FDA-Public Use
  Company Number: None

PATIENT
  Age: 58 Year
  Sex: Female
  Weight: 90.8 kg

DRUGS (10)
  1. SYNTHROID [Concomitant]
     Active Substance: LEVOTHYROXINE SODIUM
  2. SIMVASTATIN. [Suspect]
     Active Substance: SIMVASTATIN
     Indication: BLOOD CHOLESTEROL INCREASED
     Route: 048
     Dates: start: 20160209, end: 20170316
  3. LISINOPRIL. [Concomitant]
     Active Substance: LISINOPRIL
  4. C PAP MACHINE [Concomitant]
  5. TUMERIC [Concomitant]
     Active Substance: HERBALS\TURMERIC
  6. OMEGA 3 [Concomitant]
     Active Substance: OMEGA-3 FATTY ACIDS
  7. RED YEAST RICE W/CO Q10 [Concomitant]
  8. GNC WOMAN^S ULTRA [Concomitant]
  9. PENTROPAZOLE [Concomitant]
  10. VITAMIN D3 [Concomitant]
     Active Substance: CHOLECALCIFEROL

REACTIONS (10)
  - Spinal column injury [None]
  - Blood creatine phosphokinase increased [None]
  - Amnesia [None]
  - Confusional state [None]
  - Limb injury [None]
  - Multiple injuries [None]
  - Muscle injury [None]
  - Joint injury [None]
  - Myoglobin urine present [None]
  - Dehydration [None]

NARRATIVE: CASE EVENT DATE: 20170316
